FAERS Safety Report 9024592 (Version 1)
Quarter: 2013Q1

REPORT INFORMATION
  Report Type: Report from Study
  Country: JP (occurrence: JP)
  Receive Date: 20130121
  Receipt Date: 20130121
  Transmission Date: 20140127
  Serious: Yes (Hospitalization, Other)
  Sender: FDA-Public Use
  Company Number: JP-009507513-1207JPN007444

PATIENT
  Age: 62 Year
  Sex: Male
  Weight: 57 kg

DRUGS (19)
  1. PEGINTRON [Suspect]
     Indication: CHRONIC HEPATITIS C
     Dosage: 1.5 MICROGRAM PER KILOGRAM, UNK
     Route: 058
     Dates: start: 20120126
  2. PEGINTRON [Suspect]
     Dosage: 80 MICROGRAM, UNK
     Route: 058
     Dates: start: 20120331
  3. PEGINTRON [Suspect]
     Dosage: 1.5 MICROGRAM PER KILOGRAM, UNK
     Route: 058
  4. REBETOL [Suspect]
     Indication: CHRONIC HEPATITIS C
     Dosage: 600 MG, QD
     Route: 048
     Dates: start: 20120126, end: 20120229
  5. REBETOL [Suspect]
     Dosage: 400 MG, QD
     Route: 048
     Dates: start: 20120301, end: 20120307
  6. REBETOL [Suspect]
     Dosage: 200 MG, QD
     Route: 048
     Dates: start: 20120308
  7. REBETOL [Suspect]
     Dosage: 200 MG, QD
     Route: 048
     Dates: start: 20120315, end: 20120322
  8. REBETOL [Suspect]
     Dosage: 400 MG, QD
     Route: 048
     Dates: start: 20120324, end: 20120330
  9. REBETOL [Suspect]
     Dosage: 200 MG, QD
     Route: 048
     Dates: start: 20120331, end: 20120406
  10. REBETOL [Suspect]
     Dosage: 600 MG, QD
     Route: 048
     Dates: start: 20120419, end: 20120516
  11. REBETOL [Suspect]
     Dosage: 400 MG, QD
     Route: 048
     Dates: start: 20120517, end: 20120711
  12. REBETOL [Suspect]
     Dosage: 200 MG, QD
     Route: 048
     Dates: start: 20120712
  13. TELAVIC [Suspect]
     Indication: CHRONIC HEPATITIS C
     Dosage: 2250 MG, QD
     Route: 048
     Dates: start: 20120126, end: 20120307
  14. TELAVIC [Suspect]
     Dosage: 1500 MG, QD
     Route: 048
     Dates: start: 20120308, end: 20120321
  15. TELAVIC [Suspect]
     Dosage: 1000 MG, QD
     Route: 048
     Dates: start: 20120324, end: 20120406
  16. DERMOVATE [Concomitant]
     Indication: RASH
     Dosage: AS NEEDED
     Route: 061
     Dates: start: 20120128
  17. NESP [Concomitant]
     Indication: PROPHYLAXIS
     Dosage: 60 MICROGRAM PER DAY, AS NEEDED
     Route: 058
     Dates: end: 20120531
  18. NESP [Concomitant]
     Dosage: 120 MICROGRAM PER DAY, AS NEEDED
     Route: 058
     Dates: start: 20120614
  19. ALLOPURINOL [Concomitant]
     Indication: HYPERURICAEMIA
     Dosage: 100 MG, QD
     Route: 048
     Dates: end: 20120430

REACTIONS (7)
  - Rash [Recovered/Resolved]
  - Renal impairment [Recovered/Resolved]
  - Decreased appetite [Recovering/Resolving]
  - Malaise [Recovering/Resolving]
  - Haemoglobin decreased [Not Recovered/Not Resolved]
  - Anaemia [Recovering/Resolving]
  - Anaemia [Not Recovered/Not Resolved]
